FAERS Safety Report 4345766-4 (Version None)
Quarter: 2004Q2

REPORT INFORMATION
  Report Type: 
  Country: None (occurrence: None)
  Receive Date: 20040421
  Receipt Date: 20040409
  Transmission Date: 20050107
  Serious: Yes (Death)
  Sender: FDA-Public Use
  Company Number: HQWYE411109APR04

PATIENT
  Age: 76 Year
  Sex: Male

DRUGS (10)
  1. CORDAREX (AMIODARONE TABLET) [Suspect]
     Indication: TACHYARRHYTHMIA
     Dosage: 200 MG 1 X PER 1 DAY
     Route: 048
     Dates: start: 20020605, end: 20040318
  2. AMIODARONE HCL [Suspect]
     Indication: TACHYARRHYTHMIA
     Dosage: 200 MG 1 X PER 1 DAY
     Route: 048
     Dates: start: 20020101, end: 20040101
  3. VESDIL (RAMIPRIL) [Concomitant]
  4. FUROSEMIDE [Concomitant]
  5. MARCUMAR [Concomitant]
  6. PREDNISONE [Concomitant]
  7. ALLOPURINOL [Concomitant]
  8. NEBILET (NEBIVOLOL HYDROCHLORIDE) [Concomitant]
  9. OMEPRAZOLE [Concomitant]
  10. VALORON N (NALOXONE HYDROCHLORIDE/ TILIDINE HYDROCHLORIDE) [Concomitant]

REACTIONS (3)
  - COR PULMONALE [None]
  - PULMONARY FIBROSIS [None]
  - RIGHT VENTRICULAR FAILURE [None]
